FAERS Safety Report 13681113 (Version 1)
Quarter: 2017Q2

REPORT INFORMATION
  Report Type: Spontaneous
  Country: US (occurrence: US)
  Receive Date: 20170623
  Receipt Date: 20170623
  Transmission Date: 20170830
  Serious: No
  Sender: FDA-Public Use
  Company Number: US-TEVA-727834ACC

PATIENT

DRUGS (2)
  1. OMEPRAZOLE. [Suspect]
     Active Substance: OMEPRAZOLE
     Route: 065
  2. ONFI [Suspect]
     Active Substance: CLOBAZAM
     Route: 065

REACTIONS (1)
  - Drug level increased [Unknown]
